FAERS Safety Report 6847036-9 (Version None)
Quarter: 2010Q3

REPORT INFORMATION
  Report Type: 
  Country: None (occurrence: None)
  Receive Date: 20100716
  Receipt Date: 20100713
  Transmission Date: 20110219
  Serious: Yes (Hospitalization)
  Sender: FDA-Public Use
  Company Number: IT-BIOGENIDEC-2010BI020794

PATIENT
  Age: 48 Year
  Sex: Female

DRUGS (3)
  1. TYSABRI [Suspect]
     Indication: RELAPSING-REMITTING MULTIPLE SCLEROSIS
     Route: 042
     Dates: start: 20100505, end: 20100505
  2. PAROXETINE [Concomitant]
     Dates: start: 20100301
  3. GABAPENTIN [Concomitant]
     Dates: start: 20100301

REACTIONS (1)
  - PARTIAL SEIZURES [None]
